FAERS Safety Report 4761660-9 (Version None)
Quarter: 2005Q3

REPORT INFORMATION
  Report Type: 
  Country: None (occurrence: None)
  Receive Date: 20050826
  Receipt Date: 20050103
  Transmission Date: 20060218
  Serious: Yes (Other)
  Sender: FDA-Public Use
  Company Number: USA-2005-0018213

PATIENT
  Age: 24 Year
  Sex: Male

DRUGS (7)
  1. OXYCONTIN [Suspect]
  2. DRUG ADDICTION [Concomitant]
  3. DRUG ABUSER NOS [Concomitant]
  4. DRUG WITHDRAWAL SYNDROME [Concomitant]
  5. MUSCLE TIGHTNESS [Concomitant]
  6. VOMITING NOS [Concomitant]
  7. EUPHORIC MOOD [Concomitant]

REACTIONS (6)
  - DRUG ABUSER [None]
  - DRUG DEPENDENCE [None]
  - DRUG WITHDRAWAL SYNDROME [None]
  - EUPHORIC MOOD [None]
  - MUSCLE TIGHTNESS [None]
  - VOMITING [None]
